FAERS Safety Report 9735788 (Version 2)
Quarter: 2015Q3

REPORT INFORMATION
  Report Type: Spontaneous
  Country: US (occurrence: US)
  Receive Date: 20131206
  Receipt Date: 20150804
  Transmission Date: 20151125
  Serious: No
  Sender: FDA-Public Use
  Company Number: US-GILEAD-2009-0023067

PATIENT
  Age: 60 Year
  Sex: Male
  Weight: 92.53 kg

DRUGS (16)
  1. PRILOSEC [Concomitant]
     Active Substance: OMEPRAZOLE MAGNESIUM
  2. LASIX [Concomitant]
     Active Substance: FUROSEMIDE
  3. ALBUTEROL INHALER [Concomitant]
     Active Substance: ALBUTEROL
  4. ALLEGRA [Concomitant]
     Active Substance: FEXOFENADINE HYDROCHLORIDE
  5. VIAGRA [Concomitant]
     Active Substance: SILDENAFIL CITRATE
  6. ACTOS [Concomitant]
     Active Substance: PIOGLITAZONE HYDROCHLORIDE
  7. CITRACAL [Concomitant]
     Active Substance: CALCIUM CITRATE
  8. INDOCIN [Concomitant]
     Active Substance: INDOMETHACIN\INDOMETHACIN SODIUM
  9. BENEFIBER [Concomitant]
     Active Substance: STARCH, WHEAT
  10. FIBER LAXATIVE [Concomitant]
     Active Substance: CALCIUM POLYCARBOPHIL
  11. FLONASE [Concomitant]
     Active Substance: FLUTICASONE PROPIONATE
  12. ZOCOR [Concomitant]
     Active Substance: SIMVASTATIN
  13. CENTRUM [Concomitant]
     Active Substance: VITAMINS
  14. LETAIRIS [Suspect]
     Active Substance: AMBRISENTAN
     Indication: PULMONARY ARTERIAL HYPERTENSION
     Route: 048
     Dates: start: 20080808
  15. ASPIRIN. [Concomitant]
     Active Substance: ASPIRIN
  16. AVAPRO [Concomitant]
     Active Substance: IRBESARTAN

REACTIONS (1)
  - Arthropathy [Unknown]
